FAERS Safety Report 25213294 (Version 4)
Quarter: 2025Q2

REPORT INFORMATION
  Report Type: Spontaneous
  Country: US (occurrence: US)
  Receive Date: 20250418
  Receipt Date: 20250520
  Transmission Date: 20250716
  Serious: No
  Sender: BAYER HEALTHCARE PHARMACEUTICALS INC.
  Company Number: US-BAYER-2025A050777

PATIENT
  Age: 67 Year
  Sex: Female

DRUGS (1)
  1. CLIMARA PRO [Suspect]
     Active Substance: ESTRADIOL\LEVONORGESTREL
     Indication: Menopausal symptoms
     Route: 062

REACTIONS (8)
  - Application site rash [None]
  - Hot flush [None]
  - Product physical issue [None]
  - Device adhesion issue [None]
  - Drug ineffective [None]
  - Chills [Not Recovered/Not Resolved]
  - Brain fog [Not Recovered/Not Resolved]
  - Product quality issue [None]

NARRATIVE: CASE EVENT DATE: 20250422
